FAERS Safety Report 15558522 (Version 1)
Quarter: 2018Q4

REPORT INFORMATION
  Report Type: Report from Study
  Country: None (occurrence: CO)
  Receive Date: 20181028
  Receipt Date: 20181028
  Transmission Date: 20190205
  Serious: Yes (Hospitalization)
  Sender: FDA-Public Use
  Company Number: CO-ABBVIE-18K-036-2535721-00

PATIENT
  Age: 78 Year
  Sex: Female
  Weight: 52 kg

DRUGS (1)
  1. HUMIRA [Suspect]
     Active Substance: ADALIMUMAB
     Indication: ANKYLOSING SPONDYLITIS
     Route: 058
     Dates: start: 20180522

REACTIONS (3)
  - Fatigue [Recovering/Resolving]
  - Abdominal pain [Recovering/Resolving]
  - Narcolepsy [Recovering/Resolving]

NARRATIVE: CASE EVENT DATE: 20181013
